FAERS Safety Report 8613500-5 (Version None)
Quarter: 2012Q3

REPORT INFORMATION
  Report Type: 
  Country: None (occurrence: None)
  Receive Date: 20120823
  Receipt Date: 20120807
  Transmission Date: 20120928
  Serious: Yes (Other)
  Sender: FDA-Public Use
  Company Number: US-009507513-1208USA007770

PATIENT

DRUGS (5)
  1. LIPITOR [Concomitant]
  2. LOSARTAN POTASSIUM [Concomitant]
  3. MK-2452 [Suspect]
     Indication: OCULAR HYPERTENSION
     Dosage: 1 GTT, QD
     Route: 047
     Dates: start: 20120802, end: 20120805
  4. STUDY DRUG (UNSPECIFIED) [Suspect]
     Indication: OCULAR HYPERTENSION
     Dosage: 1 GTT, QD
     Route: 047
     Dates: start: 20120802, end: 20120805
  5. PRILOSEC [Concomitant]

REACTIONS (1)
  - IRITIS [None]
